FAERS Safety Report 7494013-3 (Version None)
Quarter: 2011Q2

REPORT INFORMATION
  Report Type: 
  Country: None (occurrence: None)
  Receive Date: 20110520
  Receipt Date: 20110517
  Transmission Date: 20111010
  Serious: No
  Sender: FDA-Public Use
  Company Number: US-PFIZER INC-2011106689

PATIENT
  Sex: Male

DRUGS (2)
  1. KEPPRA [Interacting]
     Indication: CONVULSION
     Dosage: UNK
  2. ZOLOFT [Suspect]
     Dosage: UNK

REACTIONS (2)
  - EPISTAXIS [None]
  - DRUG INTERACTION [None]
